FAERS Safety Report 9538647 (Version 1)
Quarter: 2013Q3

REPORT INFORMATION
  Report Type: Spontaneous
  Country: BR (occurrence: BR)
  Receive Date: 20130920
  Receipt Date: 20130920
  Transmission Date: 20140515
  Serious: Yes (Other)
  Sender: FDA-Public Use
  Company Number: PHHY2013BR104027

PATIENT
  Age: 58 Year
  Sex: Female
  Weight: 78 kg

DRUGS (6)
  1. ONBREZ [Suspect]
     Indication: COUGH
     Dosage: 150 UG, QD
     Dates: start: 20130912
  2. ONBREZ [Suspect]
     Indication: OFF LABEL USE
  3. LOSARTAN [Concomitant]
     Dosage: UNK UKN, UNK
  4. ATENOLOL [Concomitant]
     Dosage: 25 MG, UNK
  5. HORSE CHESTNUT EXTRACT [Concomitant]
     Dosage: UNK UKN, UNK
  6. METFORMIN [Concomitant]
     Dosage: 850 MG, UNK

REACTIONS (3)
  - Blood pressure increased [Unknown]
  - Facial pain [Recovering/Resolving]
  - Dysphonia [Not Recovered/Not Resolved]
